FAERS Safety Report 4956737-9 (Version None)
Quarter: 2006Q1

REPORT INFORMATION
  Report Type: 
  Country: None (occurrence: None)
  Receive Date: 20060329
  Receipt Date: 20060322
  Transmission Date: 20060701
  Serious: Yes (Hospitalization)
  Sender: FDA-Public Use
  Company Number: US-ROCHE-441686

PATIENT
  Age: 50 Year
  Sex: Male

DRUGS (7)
  1. PEGASYS [Suspect]
     Dosage: FORM: PREFILLED SYRINGE.
     Route: 058
     Dates: start: 20060118, end: 20060314
  2. PEGASYS [Suspect]
     Route: 058
     Dates: start: 20060322
  3. COPEGUS [Suspect]
     Route: 048
     Dates: start: 20060118, end: 20060314
  4. COPEGUS [Suspect]
     Route: 048
     Dates: start: 20060322
  5. ZIAC [Concomitant]
     Indication: HYPERTENSION
  6. ZOLOFT [Concomitant]
     Indication: DEPRESSION
  7. LORTAB [Concomitant]

REACTIONS (6)
  - CELLULITIS [None]
  - DRUG INEFFECTIVE [None]
  - NASAL DISCOMFORT [None]
  - RED BLOOD CELL COUNT DECREASED [None]
  - SCAB [None]
  - SWELLING FACE [None]
